FAERS Safety Report 5727847-3 (Version None)
Quarter: 2008Q2

REPORT INFORMATION
  Report Type: 
  Country: None (occurrence: None)
  Receive Date: 20080505
  Receipt Date: 20080424
  Transmission Date: 20081010
  Serious: Yes (Other)
  Sender: FDA-Public Use
  Company Number: GB-PFIZER INC-2008037409

PATIENT
  Age: 37 Year
  Sex: Female

DRUGS (6)
  1. CHANTIX [Suspect]
     Indication: SMOKING CESSATION THERAPY
     Route: 048
     Dates: start: 20080214, end: 20080331
  2. BISACODYL [Concomitant]
  3. CODEINE SUL TAB [Concomitant]
  4. FLUOXETINE [Concomitant]
  5. PARACETAMOL [Concomitant]
  6. ALBUTEROL [Concomitant]

REACTIONS (1)
  - DEPRESSION [None]
